FAERS Safety Report 9180165 (Version 2)
Quarter: 2013Q2

REPORT INFORMATION
  Report Type: Spontaneous
  Country: PH (occurrence: PH)
  Receive Date: 20130321
  Receipt Date: 20130402
  Transmission Date: 20140414
  Serious: Yes (Hospitalization)
  Sender: FDA-Public Use
  Company Number: PH-009507513-1303PHL009995

PATIENT
  Sex: Female

DRUGS (6)
  1. JANUVIA [Suspect]
     Dosage: 50 MG, QD
     Route: 048
     Dates: start: 201212
  2. JANUVIA [Suspect]
     Dosage: UNK, BID
     Dates: start: 201303
  3. LOSARTAN POTASSIUM [Concomitant]
     Route: 048
  4. METFORMIN [Concomitant]
  5. GLIMEPIRIDE [Concomitant]
  6. ISOTRETINOIN [Concomitant]

REACTIONS (2)
  - Electrolyte imbalance [Unknown]
  - Gastroenteritis [Unknown]
